FAERS Safety Report 16275797 (Version 3)
Quarter: 2019Q3

REPORT INFORMATION
  Report Type: Spontaneous
  Country: US (occurrence: US)
  Receive Date: 20190504
  Receipt Date: 20190722
  Transmission Date: 20191004
  Serious: Yes (Hospitalization)
  Sender: FDA-Public Use
  Company Number: PHEH2019US017992

PATIENT
  Age: 30 Year
  Sex: Female

DRUGS (2)
  1. GILENYA [Suspect]
     Active Substance: FINGOLIMOD HYDROCHLORIDE
     Indication: RELAPSING-REMITTING MULTIPLE SCLEROSIS
     Dosage: 0.5 MG, QD
     Route: 048
     Dates: start: 20160930, end: 20181001
  2. VITAMIN D [Concomitant]
     Active Substance: VITAMIN D NOS
     Indication: VITAMIN D DEFICIENCY
     Dosage: 5000 IU, QD
     Route: 048

REACTIONS (9)
  - Hypoaesthesia [Unknown]
  - Pain [Unknown]
  - Urinary retention [Unknown]
  - Multiple sclerosis relapse [Recovering/Resolving]
  - Paraesthesia [Unknown]
  - Maternal exposure during pregnancy [Unknown]
  - Myelitis [Unknown]
  - Coordination abnormal [Unknown]
  - Rebound effect [Not Recovered/Not Resolved]

NARRATIVE: CASE EVENT DATE: 201902
